FAERS Safety Report 15855991 (Version 1)
Quarter: 2019Q1

REPORT INFORMATION
  Report Type: Spontaneous
  Country: CA (occurrence: CA)
  Receive Date: 20190123
  Receipt Date: 20190123
  Transmission Date: 20190417
  Serious: Yes (Other)
  Sender: FDA-Public Use
  Company Number: CA-BAXTER-2019BAX001320

PATIENT
  Age: 21 Year
  Sex: Male

DRUGS (10)
  1. MIDAZOLAM HYDROCHLORIDE. [Suspect]
     Active Substance: MIDAZOLAM HYDROCHLORIDE
     Indication: SEIZURE
     Route: 065
  2. PHENOBARBITAL SODIUM. [Suspect]
     Active Substance: PHENOBARBITAL SODIUM
     Indication: SEIZURE
     Dosage: 2 EVERY 1 DAY
     Route: 042
  3. IMMUNE GLOBULIN (HUMAN) [Concomitant]
     Active Substance: HUMAN IMMUNOGLOBULIN G
     Indication: PRODUCT USED FOR UNKNOWN INDICATION
     Route: 065
  4. PHENYTOIN. [Suspect]
     Active Substance: PHENYTOIN
     Indication: SEIZURE
     Dosage: DOSAGE FORM: NOT SPECIFIED
     Route: 065
  5. SODIUM VALPROATE [Suspect]
     Active Substance: VALPROATE SODIUM
     Indication: SEIZURE
     Route: 065
  6. FORANE [Suspect]
     Active Substance: ISOFLURANE
     Indication: SEIZURE
     Dosage: DOSAGE FORM: LIQUID INHALATION
     Route: 065
  7. PROPOFOL. [Suspect]
     Active Substance: PROPOFOL
     Indication: SEIZURE
     Dosage: DOSAGE FORM: EMULSION
     Route: 065
  8. KEPPRA [Suspect]
     Active Substance: LEVETIRACETAM
     Indication: SEIZURE
     Dosage: TABLET
     Route: 065
  9. METHYLPREDNISOLONE. [Suspect]
     Active Substance: METHYLPREDNISOLONE
     Indication: PRODUCT USED FOR UNKNOWN INDICATION
     Route: 042
  10. VIMPAT [Suspect]
     Active Substance: LACOSAMIDE
     Indication: SEIZURE
     Dosage: DOSAGE FORM: NOT SPECIFIED
     Route: 065

REACTIONS (13)
  - Abdominal distension [Unknown]
  - Mucosal ulceration [Unknown]
  - Systemic inflammatory response syndrome [Unknown]
  - Pyrexia [Unknown]
  - Necrosis ischaemic [Unknown]
  - Blood lactic acid increased [Unknown]
  - Ileus [Unknown]
  - Intestinal ischaemia [Unknown]
  - Superinfection [Unknown]
  - Drug ineffective [Unknown]
  - Heart rate increased [Unknown]
  - Hypotension [Unknown]
  - Leukocytosis [Unknown]
